FAERS Safety Report 8967979 (Version 3)
Quarter: 2013Q1

REPORT INFORMATION
  Report Type: Spontaneous
  Country: US (occurrence: US)
  Receive Date: 20121217
  Receipt Date: 20130228
  Transmission Date: 20140127
  Serious: Yes (Death, Hospitalization)
  Sender: FDA-Public Use
  Company Number: US-CELGENEUS-163-21880-12121418

PATIENT
  Sex: Female

DRUGS (5)
  1. REVLIMID [Suspect]
     Indication: PLASMA CELL MYELOMA
     Dosage: 10 MILLIGRAM
     Route: 048
     Dates: start: 201008
  2. REVLIMID [Suspect]
     Dosage: 5 MILLIGRAM
     Route: 048
     Dates: start: 201106
  3. REVLIMID [Suspect]
     Dosage: 10 MILLIGRAM
     Route: 048
     Dates: start: 201204
  4. REVLIMID [Suspect]
     Dosage: 5 MILLIGRAM
     Route: 048
     Dates: start: 201208, end: 20121022
  5. DEXAMETHASONE [Interacting]
     Indication: PLASMA CELL MYELOMA
     Route: 041
     Dates: start: 20121126, end: 20121129

REACTIONS (5)
  - Hypoxia [Fatal]
  - Aspiration [Fatal]
  - Plasma cell myeloma [Fatal]
  - Renal failure [Fatal]
  - Sepsis [Fatal]
